FAERS Safety Report 8892231 (Version 1)
Quarter: 2012Q4

REPORT INFORMATION
  Report Type: 
  Country: US (occurrence: US)
  Receive Date: 20121107
  Receipt Date: 20121107
  Transmission Date: 20130627
  Serious: No
  Sender: FDA-Public Use
  Company Number: US-AMGEN-USASP2011060761

PATIENT
  Age: 45 Year
  Sex: Female
  Weight: 90.7 kg

DRUGS (7)
  1. ENBREL [Suspect]
     Indication: PRODUCT USED FOR UNKNOWN INDICATION
     Dosage: 50 mg, qwk
     Route: 058
  2. FOLIC ACID [Concomitant]
     Dosage: 1 mg, UNK
  3. METHOTREXATE [Concomitant]
     Dosage: 2.5 mg, UNK
  4. SINGULAIR [Concomitant]
     Dosage: 10 mg, UNK
  5. SEASONALE [Concomitant]
  6. BENADRYL                           /00000402/ [Concomitant]
     Dosage: 25 mg, UNK
  7. BENICAR [Concomitant]
     Dosage: 5 mg, UNK

REACTIONS (2)
  - Injection site urticaria [Unknown]
  - Urticaria [Unknown]
